FAERS Safety Report 11892724 (Version 6)
Quarter: 2017Q4

REPORT INFORMATION
  Report Type: Spontaneous
  Country: US (occurrence: US)
  Receive Date: 20160106
  Receipt Date: 20171116
  Transmission Date: 20180320
  Serious: Yes (Other)
  Sender: FDA-Public Use
  Company Number: US-PFIZER INC-2015439415

PATIENT
  Age: 65 Year
  Sex: Female
  Weight: 81 kg

DRUGS (8)
  1. GENOTROPIN [Suspect]
     Active Substance: SOMATROPIN
     Indication: HYPOPITUITARISM
     Dosage: 0.4 MG, UNK
     Dates: end: 201507
  2. GENOTROPIN [Suspect]
     Active Substance: SOMATROPIN
     Dosage: 0.2 MG, 1X/DAY
     Dates: start: 20150729
  3. GENOTROPIN [Suspect]
     Active Substance: SOMATROPIN
     Dosage: 0.1 MG, DAILY
     Route: 058
     Dates: start: 20151202
  4. GENOTROPIN [Suspect]
     Active Substance: SOMATROPIN
     Indication: GROWTH HORMONE DEFICIENCY
     Dosage: 0.1 MG, 1X/DAY
  5. GENOTROPIN [Suspect]
     Active Substance: SOMATROPIN
     Dosage: 0.1 MG, UNK
     Dates: start: 20151111, end: 20151216
  6. AZELASTINE. [Concomitant]
     Active Substance: AZELASTINE HYDROCHLORIDE
     Dosage: UNK
  7. FLUTICASONE. [Concomitant]
     Active Substance: FLUTICASONE
     Dosage: UNK
  8. BUDESONIDE. [Concomitant]
     Active Substance: BUDESONIDE
     Dosage: UNK

REACTIONS (13)
  - Fluid overload [Unknown]
  - Visual impairment [Unknown]
  - Diabetes mellitus [Unknown]
  - Carpal tunnel syndrome [Recovered/Resolved]
  - Eye pain [Unknown]
  - Headache [Unknown]
  - Head discomfort [Unknown]
  - Fatigue [Unknown]
  - Weight increased [Unknown]
  - Sinusitis [Unknown]
  - Pain [Unknown]
  - Limb discomfort [Recovered/Resolved]
  - Tinnitus [Unknown]

NARRATIVE: CASE EVENT DATE: 201507
